FAERS Safety Report 19209362 (Version 1)
Quarter: 2021Q2

REPORT INFORMATION
  Report Type: Spontaneous
  Country: US (occurrence: US)
  Receive Date: 20210503
  Receipt Date: 20210503
  Transmission Date: 20210717
  Serious: No
  Sender: FDA-Public Use
  Company Number: US-NEXGEN PHARMA, INC.-2110162

PATIENT
  Age: 18 Year
  Sex: Male

DRUGS (1)
  1. CHENODAL [Suspect]
     Active Substance: CHENODIOL
     Indication: LIPID METABOLISM DISORDER
     Route: 048
     Dates: start: 20210228

REACTIONS (6)
  - Skin discolouration [Unknown]
  - Hypertension [Unknown]
  - Gastric disorder [Unknown]
  - Respiratory disorder [Unknown]
  - Peripheral coldness [Unknown]
  - Peripheral swelling [Unknown]
